FAERS Safety Report 24725124 (Version 4)
Quarter: 2025Q3

REPORT INFORMATION
  Report Type: Report from Study
  Country: CA (occurrence: CA)
  Receive Date: 20241212
  Receipt Date: 20250809
  Transmission Date: 20251021
  Serious: Yes (Death, Other)
  Sender: ALEXION PHARMACEUTICALS
  Company Number: CA-AstraZeneca-CH-00765099A

PATIENT
  Age: 77 Year
  Sex: Female

DRUGS (19)
  1. SOLIRIS [Suspect]
     Active Substance: ECULIZUMAB
     Indication: Paroxysmal nocturnal haemoglobinuria
     Dosage: 600 MILLIGRAM, QW
     Dates: start: 20091020, end: 200911
  2. SOLIRIS [Suspect]
     Active Substance: ECULIZUMAB
     Dosage: 1200 MILLIGRAM, Q2W
     Dates: start: 20091201, end: 20241205
  3. VOYDEYA [Suspect]
     Active Substance: DANICOPAN
     Indication: Paroxysmal nocturnal haemoglobinuria
     Route: 065
  4. BISOPROLOL [Concomitant]
     Active Substance: BISOPROLOL
     Route: 065
  5. CANDESARTAN [Concomitant]
     Active Substance: CANDESARTAN
     Route: 065
  6. PANTOPRAZOLE SODIUM [Concomitant]
     Active Substance: PANTOPRAZOLE SODIUM
     Route: 065
  7. FOLIC ACID [Concomitant]
     Active Substance: FOLIC ACID
     Route: 065
  8. VITAMIN D [Concomitant]
     Active Substance: VITAMIN D NOS
     Route: 065
  9. SERTRALINE [Concomitant]
     Active Substance: SERTRALINE HYDROCHLORIDE
     Route: 065
  10. BUDESONIDE [Concomitant]
     Active Substance: BUDESONIDE
     Route: 065
  11. ACYCLOVIR [Concomitant]
     Active Substance: ACYCLOVIR
     Route: 065
  12. CETIRIZINE [Concomitant]
     Active Substance: CETIRIZINE HYDROCHLORIDE
     Route: 065
  13. MONTELUKAST [Concomitant]
     Active Substance: MONTELUKAST
     Route: 065
  14. RANITIDINE [Concomitant]
     Active Substance: RANITIDINE
     Route: 065
  15. FLUTICASONE [Concomitant]
     Active Substance: FLUTICASONE
     Route: 065
  16. HYDROMORPHONE [Concomitant]
     Active Substance: HYDROMORPHONE
     Route: 065
  17. XARELTO [Concomitant]
     Active Substance: RIVAROXABAN
     Route: 065
  18. SIMVASTATIN [Concomitant]
     Active Substance: SIMVASTATIN
     Route: 065
  19. ZOPICLONE [Concomitant]
     Active Substance: ZOPICLONE
     Route: 065

REACTIONS (1)
  - Death [Fatal]

NARRATIVE: CASE EVENT DATE: 20241210
